FAERS Safety Report 24349720 (Version 1)
Quarter: 2024Q3

REPORT INFORMATION
  Report Type: Report from Study
  Country: US (occurrence: US)
  Receive Date: 20240923
  Receipt Date: 20240923
  Transmission Date: 20241017
  Serious: Yes (Hospitalization, Other)
  Sender: ABBVIE
  Company Number: US-ABBVIE-5931212

PATIENT
  Age: 61 Year
  Sex: Female

DRUGS (2)
  1. RINVOQ [Suspect]
     Active Substance: UPADACITINIB
     Indication: Psoriatic arthropathy
     Dosage: STRENGTH :15MG?STOP DATE AUG 2024
     Route: 048
     Dates: start: 20230618
  2. RINVOQ [Suspect]
     Active Substance: UPADACITINIB
     Indication: Psoriatic arthropathy
     Dosage: STRENGTH :15MG?STRAT DATE 17 AUG 2024 OR 18 AUG 2024
     Route: 048
     Dates: start: 20240817, end: 20240907

REACTIONS (2)
  - Tibia fracture [Unknown]
  - Fall [Unknown]

NARRATIVE: CASE EVENT DATE: 20240809
